FAERS Safety Report 23858571 (Version 1)
Quarter: 2024Q2

REPORT INFORMATION
  Report Type: Spontaneous
  Country: BR (occurrence: BR)
  Receive Date: 20240515
  Receipt Date: 20240515
  Transmission Date: 20240716
  Serious: Yes (Death, Other)
  Sender: FDA-Public Use
  Company Number: BR-ORGANON-O2405BRA000050

PATIENT
  Age: 4 Year
  Sex: Female
  Weight: 18.5 kg

DRUGS (4)
  1. DESLORATADINE [Suspect]
     Active Substance: DESLORATADINE
     Dosage: 2.5 MILLILITER, QD (OR 5 DAYS)
     Route: 065
     Dates: start: 202404
  2. DIPYRONE [Suspect]
     Active Substance: DIPYRONE
     Indication: Pain
     Dosage: ADMINISTER 17 DROPS EVERY 6 HOURS
     Route: 065
  3. DIPYRONE [Suspect]
     Active Substance: DIPYRONE
     Indication: Pyrexia
  4. AMOXICILLIN\CLAVULANIC ACID [Suspect]
     Active Substance: AMOXICILLIN\CLAVULANIC ACID
     Dosage: 9.5 ML EVERY 12 HOURS FOR 7 DAYS
     Route: 065

REACTIONS (4)
  - Seizure [Fatal]
  - Pyrexia [Fatal]
  - Cardiac arrest [Unknown]
  - Stomatitis [Unknown]

NARRATIVE: CASE EVENT DATE: 20240426
